FAERS Safety Report 11528156 (Version 3)
Quarter: 2015Q4

REPORT INFORMATION
  Report Type: Report from Study
  Country: FR (occurrence: FR)
  Receive Date: 20150921
  Receipt Date: 20151002
  Transmission Date: 20160304
  Serious: Yes (Hospitalization)
  Sender: FDA-Public Use
  Company Number: FR-ROCHE-1635543

PATIENT
  Age: 69 Year
  Sex: Female

DRUGS (3)
  1. BEVACIZUMAB [Suspect]
     Active Substance: BEVACIZUMAB
     Indication: OVARIAN CANCER
     Dosage: DATE OF LAST ADMINISTRATION BEFORE SAE 18/MAR/2015.
     Route: 065
     Dates: start: 20141217, end: 20150318
  2. LEVOTHYROX [Concomitant]
     Active Substance: LEVOTHYROXINE
  3. LERCAN [Concomitant]
     Active Substance: LERCANIDIPINE

REACTIONS (3)
  - Abdominal hernia [Not Recovered/Not Resolved]
  - Urinary tract obstruction [Not Recovered/Not Resolved]
  - Renal failure [Not Recovered/Not Resolved]

NARRATIVE: CASE EVENT DATE: 20150420
